FAERS Safety Report 14980726 (Version 1)
Quarter: 2018Q2

REPORT INFORMATION
  Report Type: Spontaneous
  Country: US (occurrence: US)
  Receive Date: 20180515
  Receipt Date: 20180515
  Transmission Date: 20180711
  Serious: Yes (Disabling)
  Sender: FDA-Public Use
  Company Number: None

PATIENT
  Age: 82 Year
  Sex: Female
  Weight: 69.85 kg

DRUGS (4)
  1. VITAMIN B12 [Concomitant]
     Active Substance: CYANOCOBALAMIN
  2. FOLIC ACID. [Concomitant]
     Active Substance: FOLIC ACID
  3. XARELTO [Suspect]
     Active Substance: RIVAROXABAN
     Indication: THROMBOSIS
     Dosage: ?          QUANTITY:1 DF DOSAGE FORM;?
     Route: 048
     Dates: start: 201802, end: 20180416
  4. B-6 [Concomitant]

REACTIONS (8)
  - Dizziness [None]
  - Musculoskeletal chest pain [None]
  - Cold sweat [None]
  - Arthralgia [None]
  - Coccydynia [None]
  - Musculoskeletal pain [None]
  - Pain in extremity [None]
  - Chills [None]

NARRATIVE: CASE EVENT DATE: 20180410
